FAERS Safety Report 4275207-7 (Version None)
Quarter: 2004Q1

REPORT INFORMATION
  Report Type: 
  Country: None (occurrence: None)
  Receive Date: 20040116
  Receipt Date: 20040112
  Transmission Date: 20041129
  Serious: Yes (Hospitalization)
  Sender: FDA-Public Use
  Company Number: 2003-BP-10453RO

PATIENT
  Age: 22 Year
  Sex: Female
  Weight: 63.6 kg

DRUGS (3)
  1. METHADONE HCL [Suspect]
     Indication: PROPHYLAXIS
     Dosage: ? 40 MG/DAY (NR, 1 IN 1 D), PO; NR (RT, 1 IN 1 D) PO
     Route: 048
     Dates: start: 19980101, end: 19990201
  2. METHADONE HCL [Suspect]
     Indication: PROPHYLAXIS
     Dosage: ? 40 MG/DAY (NR, 1 IN 1 D), PO; NR (RT, 1 IN 1 D) PO
     Route: 048
     Dates: start: 20031028
  3. ORLAAM [Suspect]
     Indication: PROPHYLAXIS
     Dosage: 45MG-45MG-50MG (M-W-F, 3 X WEEK) (RT, 3 IN 1 WK), PO
     Route: 048
     Dates: start: 19990201, end: 20031027

REACTIONS (8)
  - CHEST PAIN [None]
  - CONVULSION [None]
  - EDUCATIONAL PROBLEM [None]
  - INSOMNIA [None]
  - NAUSEA [None]
  - PSYCHOMOTOR HYPERACTIVITY [None]
  - PSYCHOTIC DISORDER [None]
  - VOMITING [None]
